FAERS Safety Report 21247464 (Version 1)
Quarter: 2022Q3

REPORT INFORMATION
  Report Type: Report from Study
  Country: CN (occurrence: CN)
  Receive Date: 20220824
  Receipt Date: 20220824
  Transmission Date: 20221027
  Serious: Yes (Other)
  Sender: FDA-Public Use
  Company Number: CN-PFIZER INC-202201074585

PATIENT

DRUGS (3)
  1. SIROLIMUS [Suspect]
     Active Substance: SIROLIMUS
     Indication: Haemangioma-thrombocytopenia syndrome
     Dosage: 0.05 MG/KG/12 HR
  2. PREDNISOLONE [Concomitant]
     Active Substance: PREDNISOLONE
     Indication: Haemangioma-thrombocytopenia syndrome
     Dosage: 2 MG/KG, 1X/DAY
  3. VINCRISTINE [Concomitant]
     Active Substance: VINCRISTINE
     Indication: Haemangioma-thrombocytopenia syndrome
     Dosage: 0.05 MG/KG/WEEK

REACTIONS (2)
  - Upper respiratory tract infection [Unknown]
  - Stomatitis [Unknown]
